FAERS Safety Report 16375124 (Version 2)
Quarter: 2020Q1

REPORT INFORMATION
  Report Type: Report from Study
  Country: DE (occurrence: DE)
  Receive Date: 20190531
  Receipt Date: 20200216
  Transmission Date: 20200409
  Serious: Yes (Hospitalization)
  Sender: FDA-Public Use
  Company Number: DE-ROCHE-2325603

PATIENT
  Age: 40 Year
  Sex: Female
  Weight: 55 kg

DRUGS (7)
  1. DEKRISTOL [Concomitant]
     Active Substance: CHOLECALCIFEROL
     Indication: VITAMIN D DEFICIENCY
     Route: 048
     Dates: start: 20190918
  2. MACROGOL [Concomitant]
     Active Substance: POLYETHYLENE GLYCOLS
     Indication: ABDOMINAL PAIN
     Dosage: DEFINITION OF THE INTERVAL: AS REQUIRED
     Route: 065
     Dates: start: 20190531, end: 20190531
  3. OCRELIZUMAB. [Suspect]
     Active Substance: OCRELIZUMAB
     Indication: MULTIPLE SCLEROSIS
     Route: 042
     Dates: start: 20180604
  4. ORTOTON [METHOCARBAMOL] [Concomitant]
     Indication: NECK PAIN
     Route: 048
     Dates: start: 20190523, end: 20190523
  5. TRAMAL [Concomitant]
     Active Substance: TRAMADOL
     Indication: NECK PAIN
     Route: 048
     Dates: start: 20190523, end: 20190523
  6. FAMPYRA [Concomitant]
     Active Substance: DALFAMPRIDINE
     Indication: MULTIPLE SCLEROSIS
     Route: 048
  7. BOTOX [Concomitant]
     Active Substance: ONABOTULINUMTOXINA
     Indication: NEUROGENIC BLADDER
     Dosage: DEFINITION OF THE INTERVAL: AS REQUIRED
     Route: 065

REACTIONS (1)
  - Bronchitis [Recovered/Resolved]

NARRATIVE: CASE EVENT DATE: 20181106
